FAERS Safety Report 10226904 (Version 1)
Quarter: 2014Q2

REPORT INFORMATION
  Report Type: Spontaneous
  Country: ES (occurrence: ES)
  Receive Date: 20140610
  Receipt Date: 20140610
  Transmission Date: 20141212
  Serious: Yes (Other)
  Sender: FDA-Public Use
  Company Number: ES-MERCK-1406ESP001124

PATIENT
  Age: 62 Year
  Sex: Female

DRUGS (4)
  1. PEGINTRON [Suspect]
     Indication: HEPATITIS C
     Dosage: 1.5 UG/KG QW
  2. VICTRELIS [Suspect]
     Indication: HEPATITIS C
     Route: 048
  3. COPEGUS [Suspect]
     Indication: HEPATITIS C
     Dosage: 800 MG, QD
  4. COPEGUS [Suspect]
     Dosage: 600 MG, QD

REACTIONS (11)
  - Pyrexia [Unknown]
  - Neutrophil count decreased [Unknown]
  - Oral candidiasis [Unknown]
  - White blood cell count decreased [Unknown]
  - Pain in extremity [Unknown]
  - Vomiting [Unknown]
  - Haemoglobin decreased [Unknown]
  - Alopecia [Unknown]
  - Rash pruritic [Unknown]
  - Platelet count decreased [Unknown]
  - Anaemia [Unknown]
